FAERS Safety Report 8074806-4 (Version None)
Quarter: 2012Q1

REPORT INFORMATION
  Report Type: 
  Country: None (occurrence: None)
  Receive Date: 20120126
  Receipt Date: 20120123
  Transmission Date: 20120608
  Serious: No
  Sender: FDA-Public Use
  Company Number: US-PFIZER INC-2012019751

PATIENT

DRUGS (2)
  1. EFFEXOR [Suspect]
     Dosage: 75MG
  2. EFFEXOR [Suspect]
     Dosage: 37MG

REACTIONS (1)
  - ORGASM ABNORMAL [None]
